FAERS Safety Report 12878152 (Version 2)
Quarter: 2016Q4

REPORT INFORMATION
  Report Type: Spontaneous
  Country: BE (occurrence: BE)
  Receive Date: 20161024
  Receipt Date: 20161205
  Transmission Date: 20170207
  Serious: Yes (Other)
  Sender: FDA-Public Use
  Company Number: ALCN2016BE006968

PATIENT
  Age: 71 Year
  Sex: Female

DRUGS (2)
  1. DUOTRAV POLYQUAD [Suspect]
     Active Substance: TIMOLOL MALEATE\TRAVOPROST
     Indication: GLAUCOMA
     Dosage: 1 DF, QD
     Route: 047
     Dates: start: 20160527, end: 20160930
  2. SIMBRINZA [Suspect]
     Active Substance: BRIMONIDINE TARTRATE\BRINZOLAMIDE
     Indication: GLAUCOMA
     Dosage: 1 DF, BID
     Route: 047
     Dates: start: 20160429, end: 20160801

REACTIONS (4)
  - Conjunctival disorder [Recovered/Resolved]
  - Conjunctival hyperaemia [Recovered/Resolved]
  - Punctate keratitis [Recovered/Resolved]
  - Eye allergy [Recovered/Resolved]

NARRATIVE: CASE EVENT DATE: 20160620
